FAERS Safety Report 8009661-1 (Version None)
Quarter: 2011Q4

REPORT INFORMATION
  Report Type: 
  Country: None (occurrence: None)
  Receive Date: 20111228
  Receipt Date: 20111219
  Transmission Date: 20120403
  Serious: No
  Sender: FDA-Public Use
  Company Number: US-BIOGENIDEC-2011BI010002

PATIENT
  Age: 45 Year
  Sex: Female

DRUGS (2)
  1. TYSABRI [Suspect]
     Indication: MULTIPLE SCLEROSIS
     Route: 042
     Dates: start: 20090505
  2. AVONEX [Concomitant]
     Indication: MULTIPLE SCLEROSIS
     Route: 030
     Dates: start: 20051108

REACTIONS (9)
  - WEIGHT DECREASED [None]
  - SCARLET FEVER [None]
  - MULTIPLE SCLEROSIS RELAPSE [None]
  - VARICELLA [None]
  - RESPIRATORY TRACT INFECTION [None]
  - SEASONAL ALLERGY [None]
  - FATIGUE [None]
  - MIGRAINE [None]
  - BRONCHITIS [None]
